FAERS Safety Report 13691506 (Version 1)
Quarter: 2017Q2

REPORT INFORMATION
  Report Type: Spontaneous
  Country: US (occurrence: US)
  Receive Date: 20170626
  Receipt Date: 20170626
  Transmission Date: 20170830
  Serious: No
  Sender: FDA-Public Use
  Company Number: US-ROCHE-666266

PATIENT
  Age: 63 Year
  Sex: Female

DRUGS (5)
  1. CELLCEPT [Suspect]
     Active Substance: MYCOPHENOLATE MOFETIL\MYCOPHENOLATE MOFETIL HYDROCHLORIDE
     Dosage: DURATION 5 DAYS
     Route: 048
  2. OXYCODONE [Concomitant]
     Active Substance: OXYCODONE
     Route: 065
  3. PLAQUENIL [Concomitant]
     Active Substance: HYDROXYCHLOROQUINE SULFATE
     Dosage: DRUG REPORTED AS GENERIC PLAQUENIL
     Route: 065
  4. CELLCEPT [Suspect]
     Active Substance: MYCOPHENOLATE MOFETIL\MYCOPHENOLATE MOFETIL HYDROCHLORIDE
     Route: 048
  5. CELLCEPT [Suspect]
     Active Substance: MYCOPHENOLATE MOFETIL\MYCOPHENOLATE MOFETIL HYDROCHLORIDE
     Indication: VASCULITIS
     Dosage: RECEIVED FOR FOUR DAYS
     Route: 048

REACTIONS (10)
  - Fatigue [Unknown]
  - Chills [Unknown]
  - Tremor [Unknown]
  - Nausea [Unknown]
  - Nausea [Unknown]
  - Headache [Not Recovered/Not Resolved]
  - Gastrointestinal sounds abnormal [Unknown]
  - Weight decreased [Unknown]
  - Increased appetite [Unknown]
  - Constipation [Unknown]

NARRATIVE: CASE EVENT DATE: 200910
